FAERS Safety Report 6664552-3 (Version None)
Quarter: 2010Q2

REPORT INFORMATION
  Report Type: 
  Country: None (occurrence: None)
  Receive Date: 20100401
  Receipt Date: 20100318
  Transmission Date: 20101027
  Serious: No
  Sender: FDA-Public Use
  Company Number: US-B.I. PHARMACEUTICALS,INC./RIDGEFIELD-2010-BP-01122BP

PATIENT
  Age: 71 Year
  Sex: Female
  Weight: 66 kg

DRUGS (15)
  1. SPIRIVA [Suspect]
     Indication: DYSPNOEA
     Dosage: 18 MCG
     Dates: start: 20091001
  2. SPIRIVA [Suspect]
     Indication: DYSPNOEA EXERTIONAL
  3. VYTORIN [Concomitant]
  4. ACIPHEX [Concomitant]
  5. CLONAZEPAM [Concomitant]
  6. TRAZODONE [Concomitant]
  7. BUPROPION HCL [Concomitant]
  8. CITALOPRAM HYDROBROMIDE [Concomitant]
  9. AVAPRO [Concomitant]
  10. TRICOR NFE [Concomitant]
  11. SINGULAIR [Concomitant]
  12. VIT D [Concomitant]
  13. VIT E [Concomitant]
  14. VIT B12 [Concomitant]
  15. 1 A DAY VIT [Concomitant]

REACTIONS (2)
  - MUSCLE SPASMS [None]
  - PAIN IN EXTREMITY [None]
